FAERS Safety Report 25646369 (Version 1)
Quarter: 2025Q3

REPORT INFORMATION
  Report Type: Spontaneous
  Country: EU (occurrence: EU)
  Receive Date: 20250805
  Receipt Date: 20250805
  Transmission Date: 20251021
  Serious: Yes (Other)
  Sender: ELI LILLY AND COMPANY
  Company Number: EU-ELI_LILLY_AND_COMPANY-DE202507023901

PATIENT
  Age: 66 Year
  Sex: Male

DRUGS (2)
  1. TALTZ [Suspect]
     Active Substance: IXEKIZUMAB
     Indication: Psoriasis
     Route: 065
     Dates: start: 2025
  2. OXYGEN [Concomitant]
     Active Substance: OXYGEN
     Indication: Product used for unknown indication

REACTIONS (7)
  - Peripheral vein occlusion [Unknown]
  - Blindness unilateral [Unknown]
  - Gingival recession [Unknown]
  - Cluster headache [Unknown]
  - Lacrimation increased [Unknown]
  - Hypoacusis [Unknown]
  - Feeling abnormal [Unknown]
